FAERS Safety Report 11118750 (Version 1)
Quarter: 2015Q2

REPORT INFORMATION
  Report Type: Spontaneous
  Country: US (occurrence: None)
  Receive Date: 20150515
  Receipt Date: 20150515
  Transmission Date: 20150821
  Serious: Yes (Hospitalization)
  Sender: FDA-Public Use
  Company Number: None

PATIENT
  Age: 6 Year
  Sex: Female
  Weight: 24.45 kg

DRUGS (4)
  1. METHOTREXATE [Suspect]
     Active Substance: METHOTREXATE
     Dosage: TOTAL DOSE ADMINISTERED 48.75 MG ORAL METHOTREXATE ON HOLD AT THIS TIME GIVEN ELEVATED AST/ALT. AGENT ADJUSTMENT NA AGENT DELAYED YES DELAY 11 DAYS
     Route: 048
     Dates: end: 20150430
  2. MERCAPTOPURINE. [Suspect]
     Active Substance: MERCAPTOPURINE
     Dosage: TOTAL DOSE ADMINISTERED 2300 MG ORAL MERCAPTOPURINE ON HOLD AT THIS TIME GIVEN ELEVATED AST/ALT. AGENT ADJUSTMENT N/A AGENT DELAYED YES DELAY 11 DAYS
     Route: 048
     Dates: end: 20150430
  3. VINCRISTINE SULFATE. [Suspect]
     Active Substance: VINCRISTINE SULFATE
     Dosage: TOTAL DOSE ADMINISTERED 2.64 MG
     Dates: end: 20150424
  4. PREDNISONE. [Suspect]
     Active Substance: PREDNISONE
     Dosage: TOTAL DOSE ADMINISTERED 350 MG
     Dates: end: 20150428

REACTIONS (2)
  - Hypoxia [None]
  - Pneumocystis jirovecii pneumonia [None]

NARRATIVE: CASE EVENT DATE: 20150505
